FAERS Safety Report 8263568-3 (Version None)
Quarter: 2012Q2

REPORT INFORMATION
  Report Type: 
  Country: None (occurrence: None)
  Receive Date: 20120405
  Receipt Date: 20120329
  Transmission Date: 20120825
  Serious: Yes (Death)
  Sender: FDA-Public Use
  Company Number: CHPA2012US006088

PATIENT
  Sex: Male

DRUGS (2)
  1. CHEMOTHERAPEUTICS [Concomitant]
     Indication: COLORECTAL CANCER
     Dosage: UNK, UNK
  2. NUPERCAINAL HEMORRHOIDAL/ANES OINTMENT [Suspect]
     Indication: PROCTALGIA
     Dosage: UNK, UNK
     Route: 061

REACTIONS (1)
  - DEATH [None]
